FAERS Safety Report 10889796 (Version 2)
Quarter: 2015Q1

REPORT INFORMATION
  Report Type: Spontaneous
  Country: JP (occurrence: JP)
  Receive Date: 20150305
  Receipt Date: 20150323
  Transmission Date: 20150721
  Serious: Yes (Hospitalization, Other)
  Sender: FDA-Public Use
  Company Number: JP-SA-2015SA027291

PATIENT
  Age: 61 Year
  Sex: Female
  Weight: 59 kg

DRUGS (23)
  1. METHYCOBAL [Concomitant]
     Active Substance: METHYLCOBALAMIN
     Dates: start: 20090729, end: 20120611
  2. SEROQUEL [Suspect]
     Active Substance: QUETIAPINE FUMARATE
     Indication: DELUSIONAL DISORDER, UNSPECIFIED TYPE
     Route: 048
     Dates: start: 20120315, end: 20120801
  3. MYSLEE [Suspect]
     Active Substance: ZOLPIDEM TARTRATE
     Indication: DELUSIONAL DISORDER, UNSPECIFIED TYPE
     Route: 048
     Dates: start: 20150119
  4. NEUROTROPIN [Concomitant]
     Active Substance: NEUROTROPIN
     Dates: start: 20090622, end: 20140613
  5. RIVOTRIL [Concomitant]
     Active Substance: CLONAZEPAM
     Dates: start: 20111222, end: 20130512
  6. LIPITOR [Concomitant]
     Active Substance: ATORVASTATIN CALCIUM
     Dates: start: 20070201
  7. LOXONIN [Concomitant]
     Active Substance: LOXOPROFEN SODIUM
     Dates: start: 20110929, end: 20130109
  8. TAKEPRON [Concomitant]
     Active Substance: LANSOPRAZOLE
     Dates: start: 20120315, end: 20130610
  9. SEROQUEL [Suspect]
     Active Substance: QUETIAPINE FUMARATE
     Indication: DELUSIONAL DISORDER, UNSPECIFIED TYPE
     Route: 048
     Dates: end: 20060409
  10. SEROQUEL [Suspect]
     Active Substance: QUETIAPINE FUMARATE
     Indication: DELUSIONAL DISORDER, UNSPECIFIED TYPE
     Route: 048
     Dates: start: 20060410, end: 20071017
  11. SEROQUEL [Suspect]
     Active Substance: QUETIAPINE FUMARATE
     Indication: DELUSIONAL DISORDER, UNSPECIFIED TYPE
     Route: 048
     Dates: start: 20071018, end: 20071219
  12. GOODMIN [Concomitant]
     Active Substance: BROTIZOLAM
     Dates: start: 20110929, end: 20130502
  13. TIZANIDINE HYDROCHLORIDE. [Concomitant]
     Active Substance: TIZANIDINE HYDROCHLORIDE
     Dates: start: 20110302, end: 20131016
  14. DIMETICONE [Concomitant]
     Active Substance: DIMETHICONE
     Dates: start: 20091202, end: 20111002
  15. MUCOSTA [Concomitant]
     Active Substance: REBAMIPIDE
     Dates: start: 20110929, end: 20140603
  16. ULCERLMIN [Concomitant]
     Active Substance: SUCRALFATE
     Dosage: FINE GRANULE
     Dates: start: 20120705, end: 20121224
  17. SEROQUEL [Suspect]
     Active Substance: QUETIAPINE FUMARATE
     Indication: DELUSIONAL DISORDER, UNSPECIFIED TYPE
     Route: 048
     Dates: start: 20071220, end: 20110714
  18. ZYPREXA [Suspect]
     Active Substance: OLANZAPINE
     Indication: DELUSIONAL DISORDER, UNSPECIFIED TYPE
     Route: 048
     Dates: end: 20130403
  19. KAMISHOYOSAN [Concomitant]
     Dates: start: 20071220, end: 20120926
  20. NORVASC [Concomitant]
     Active Substance: AMLODIPINE BESYLATE
     Dates: start: 20110803, end: 20121219
  21. SEROQUEL [Suspect]
     Active Substance: QUETIAPINE FUMARATE
     Indication: DELUSIONAL DISORDER, UNSPECIFIED TYPE
     Route: 048
     Dates: start: 20120802, end: 20130403
  22. MAGMITT [Concomitant]
     Active Substance: MAGNESIUM OXIDE
     Dates: start: 20110802, end: 20130530
  23. ALLOID [Concomitant]
     Dates: start: 20120719, end: 20130725

REACTIONS (6)
  - Lymph node tuberculosis [Recovered/Resolved]
  - Diabetes mellitus [Recovering/Resolving]
  - Weight decreased [Recovering/Resolving]
  - Off label use [Unknown]
  - Hepatic function abnormal [Recovered/Resolved]
  - Spinal osteoarthritis [Unknown]

NARRATIVE: CASE EVENT DATE: 20070808
